FAERS Safety Report 7523480-1 (Version None)
Quarter: 2011Q2

REPORT INFORMATION
  Report Type: 
  Country: None (occurrence: None)
  Receive Date: 20110603
  Receipt Date: 20110526
  Transmission Date: 20111010
  Serious: Yes (Life-Threatening)
  Sender: FDA-Public Use
  Company Number: TR-CELGENEUS-161-C5013-11053263

PATIENT
  Sex: Male
  Weight: 85 kg

DRUGS (1)
  1. LENALIDOMIDE [Suspect]
     Dosage: 10 MILLIGRAM
     Route: 048
     Dates: start: 20110310, end: 20110331

REACTIONS (1)
  - MYELODYSPLASTIC SYNDROME TRANSFORMATION [None]
